FAERS Safety Report 7827223-3 (Version None)
Quarter: 2011Q4

REPORT INFORMATION
  Report Type: 
  Country: None (occurrence: None)
  Receive Date: 20111020
  Receipt Date: 20111013
  Transmission Date: 20120403
  Serious: Yes (Death, Life-Threatening)
  Sender: FDA-Public Use
  Company Number: JP-GENZYME-THYM-1002840

PATIENT
  Sex: Male
  Weight: 50 kg

DRUGS (15)
  1. BUSULFAN [Concomitant]
     Indication: BONE MARROW CONDITIONING REGIMEN
     Dosage: UNK
     Dates: start: 20101025, end: 20101026
  2. THYMOGLOBULIN [Suspect]
     Indication: BONE MARROW CONDITIONING REGIMEN
     Dosage: 125 MG, QD
     Route: 042
     Dates: start: 20101027, end: 20101029
  3. METHYLPREDNISOLONE SODIUM SUCCINATE [Concomitant]
     Indication: PREMEDICATION
     Dosage: UNK
     Dates: start: 20101027, end: 20101029
  4. HYDROCORTISONE SODIUM SUCCINATE [Concomitant]
     Indication: PROPHYLAXIS
     Dosage: UNK
     Dates: start: 20101031, end: 20110112
  5. FUROSEMIDE [Concomitant]
     Indication: PROPHYLAXIS
     Dosage: UNK
     Dates: start: 20101029, end: 20110111
  6. FLUDARABINE PHOSPHATE [Concomitant]
     Indication: BONE MARROW CONDITIONING REGIMEN
     Dosage: UNK
     Dates: start: 20101026, end: 20101030
  7. TACROLIMUS [Concomitant]
     Indication: PROPHYLAXIS AGAINST GRAFT VERSUS HOST DISEASE
     Dosage: UNK
     Dates: start: 20101029, end: 20101127
  8. RED BLOOD CELLS, CONCENTRATED [Concomitant]
     Indication: ACUTE MYELOID LEUKAEMIA
     Dosage: UNK
     Dates: start: 20100917, end: 20110106
  9. CHLORPHENIRAMINE MALEATE [Concomitant]
     Indication: PREMEDICATION
     Dosage: UNK
     Dates: start: 20101027, end: 20101029
  10. MICAFUNGIN SODIUM [Concomitant]
     Indication: INFECTION PROPHYLAXIS
     Dosage: UNK
     Dates: start: 20101025, end: 20101112
  11. LENOGRASTIM [Concomitant]
     Indication: SUPPORTIVE CARE
     Dosage: UNK
     Dates: start: 20101102, end: 20101121
  12. IMMUNOGLOBULIN HUMAN NORMAL [Concomitant]
     Indication: INFECTION PROPHYLAXIS
     Dosage: UNK
     Dates: start: 20101102, end: 20101130
  13. POLYMYCIN B SULFATE [Concomitant]
     Indication: INFECTION PROPHYLAXIS
     Dosage: UNK
     Dates: start: 20101008, end: 20110112
  14. PLATELETS, CONCENTRATED [Concomitant]
     Indication: ACUTE MYELOID LEUKAEMIA
     Dosage: UNK
     Dates: start: 20100904, end: 20110107
  15. URSODIOL [Concomitant]
     Indication: PROPHYLAXIS
     Dosage: UNK
     Dates: start: 20101101, end: 20110112

REACTIONS (7)
  - ENTEROCOLITIS BACTERIAL [None]
  - ACUTE MYELOID LEUKAEMIA [None]
  - PYREXIA [None]
  - STOMATITIS [None]
  - NAUSEA [None]
  - ACUTE MYOCARDIAL INFARCTION [None]
  - CORYNEBACTERIUM INFECTION [None]
